FAERS Safety Report 24752907 (Version 1)
Quarter: 2024Q4

REPORT INFORMATION
  Report Type: Spontaneous
  Country: US (occurrence: None)
  Receive Date: 20241218
  Receipt Date: 20241218
  Transmission Date: 20250115
  Serious: No
  Sender: Public
  Company Number: None

PATIENT
  Age: 77 Year
  Sex: Female
  Weight: 79.83 kg

DRUGS (1)
  1. TREMFYA [Suspect]
     Active Substance: GUSELKUMAB
     Indication: Psoriatic arthropathy
     Dosage: FREQUENCY : AS DIRECTED;?
     Route: 058
     Dates: start: 201805

REACTIONS (1)
  - Influenza [None]
